FAERS Safety Report 5513743-3 (Version None)
Quarter: 2007Q4

REPORT INFORMATION
  Report Type: 
  Country: None (occurrence: None)
  Receive Date: 20071113
  Receipt Date: 20071109
  Transmission Date: 20080405
  Serious: Yes (Life-Threatening, Hospitalization, Disabling, Other)
  Sender: FDA-Public Use
  Company Number: PHBS2007DK05194

PATIENT
  Age: 46 Year
  Sex: Female

DRUGS (6)
  1. DESERIL [Suspect]
     Indication: CLUSTER HEADACHE
     Dosage: 6 MG/D
     Route: 048
     Dates: start: 20040201, end: 20050204
  2. KODIMAGNYL [Concomitant]
     Indication: HEADACHE
  3. VERALOC - SLOW RELEASE [Concomitant]
     Indication: HEADACHE
  4. LITHIUM CARBONATE [Concomitant]
     Indication: HEADACHE
     Dosage: UNK, UNK
     Dates: end: 20050113
  5. ANTIDEPRESSANTS [Concomitant]
     Indication: DEPRESSION
  6. LITHIUM CARBONATE [Concomitant]
     Dosage: 0.6 G/D
     Route: 065

REACTIONS (22)
  - ABDOMINAL PAIN LOWER [None]
  - ANTIPSYCHOTIC DRUG LEVEL INCREASED [None]
  - DIARRHOEA [None]
  - DYSMENORRHOEA [None]
  - DYSPNOEA [None]
  - EXOPHTHALMOS [None]
  - EYE DISORDER [None]
  - GALLBLADDER DISORDER [None]
  - GENITAL INFECTION FEMALE [None]
  - HEART VALVE OPERATION [None]
  - HYDRONEPHROSIS [None]
  - KERATITIS [None]
  - MALAISE [None]
  - METABOLIC DISORDER [None]
  - MITRAL VALVE INCOMPETENCE [None]
  - MUSCLE FIBROSIS [None]
  - NAUSEA [None]
  - PERITONEAL DISORDER [None]
  - PYREXIA [None]
  - RENAL IMPAIRMENT [None]
  - RETROPERITONEAL FIBROSIS [None]
  - VOMITING [None]
